FAERS Safety Report 6477436-0 (Version None)
Quarter: 2009Q4

REPORT INFORMATION
  Report Type: 
  Country: None (occurrence: None)
  Receive Date: 20091207
  Receipt Date: 20091105
  Transmission Date: 20100525
  Serious: Yes (Hospitalization)
  Sender: FDA-Public Use
  Company Number: PL-SANOFI-AVENTIS-2009SA000441

PATIENT
  Sex: Female

DRUGS (1)
  1. LOKREN [Suspect]
     Indication: HEART RATE ABNORMAL
     Route: 048
     Dates: start: 20080101

REACTIONS (1)
  - CARDIAC VALVE REPLACEMENT COMPLICATION [None]
